FAERS Safety Report 9563542 (Version 3)
Quarter: 2013Q4

REPORT INFORMATION
  Report Type: Spontaneous
  Country: DE (occurrence: None)
  Receive Date: 20130926
  Receipt Date: 20131218
  Transmission Date: 20140711
  Serious: Yes (Hospitalization)
  Sender: FDA-Public Use
  Company Number: AUR-APL-2013-07794

PATIENT
  Age: 71 Year
  Sex: Female
  Weight: 88 kg

DRUGS (2)
  1. SIMVASTATIN [Suspect]
     Indication: HIP ARTHROPLASTY
     Dosage: STOPPED
     Route: 048
  2. ELIQUIS [Suspect]
     Indication: HIP ARTHROPLASTY
     Dosage: 5 MG (2.5 MG, 2 IN 1 D), ORAL
     Route: 048
     Dates: start: 20130625, end: 20130730

REACTIONS (8)
  - Jaundice [None]
  - Blood bilirubin increased [None]
  - Transaminases increased [None]
  - Blood alkaline phosphatase increased [None]
  - Gamma-glutamyltransferase increased [None]
  - Blood bilirubin increased [None]
  - C-reactive protein increased [None]
  - Drug-induced liver injury [None]
